FAERS Safety Report 8576819 (Version 4)
Quarter: 2015Q1

REPORT INFORMATION
  Report Type: Spontaneous
  Country: US (occurrence: US)
  Receive Date: 20120524
  Receipt Date: 20150205
  Transmission Date: 20150721
  Serious: Yes (Hospitalization, Other)
  Sender: FDA-Public Use
  Company Number: US-ASTRAZENECA-2012SE30504

PATIENT
  Age: 77 Year
  Sex: Male
  Weight: 90.7 kg

DRUGS (4)
  1. TOPROL XL [Suspect]
     Active Substance: METOPROLOL SUCCINATE
     Indication: ARTERIAL DISORDER
     Route: 048
     Dates: start: 200504
  2. TOPROL XL [Suspect]
     Active Substance: METOPROLOL SUCCINATE
     Indication: ARTERIAL OCCLUSIVE DISEASE
     Route: 048
     Dates: start: 200504
  3. TOPROL XL [Suspect]
     Active Substance: METOPROLOL SUCCINATE
     Indication: CORONARY ARTERIAL STENT INSERTION
     Route: 048
     Dates: start: 200504
  4. TOPROL XL [Suspect]
     Active Substance: METOPROLOL SUCCINATE
     Indication: BLOOD DISORDER
     Route: 048
     Dates: start: 200504

REACTIONS (16)
  - Blood insulin decreased [Unknown]
  - Peripheral vascular disorder [Unknown]
  - Product use issue [Unknown]
  - Tenderness [Not Recovered/Not Resolved]
  - Pain in extremity [Not Recovered/Not Resolved]
  - Arteriosclerosis coronary artery [Unknown]
  - Dyspepsia [Unknown]
  - Drug dose omission [Unknown]
  - Chest discomfort [Unknown]
  - Osteomyelitis [Recovered/Resolved]
  - Skin ulcer [Unknown]
  - Pain [Unknown]
  - Localised infection [Recovered/Resolved]
  - Diabetes mellitus inadequate control [Unknown]
  - Hypoaesthesia [Unknown]
  - Hypoacusis [Not Recovered/Not Resolved]

NARRATIVE: CASE EVENT DATE: 2012
